FAERS Safety Report 15213365 (Version 2)
Quarter: 2019Q1

REPORT INFORMATION
  Report Type: Spontaneous
  Country: US (occurrence: US)
  Receive Date: 20180730
  Receipt Date: 20190123
  Transmission Date: 20190417
  Serious: Yes (Other)
  Sender: FDA-Public Use
  Company Number: US-CIPLA LTD.-2018US20321

PATIENT

DRUGS (9)
  1. PYRIDOXINE                         /00058902/ [Concomitant]
     Active Substance: PYRIDOXINE
     Indication: TONIC CONVULSION
     Dosage: 100 MG, UNK
     Route: 065
  2. FOLINIC ACID                       /00566702/ [Concomitant]
     Active Substance: LEUCOVORIN CALCIUM
     Dosage: 75 MG, BID (2.5 MG/KG)
     Route: 065
  3. TOPIRAMATE. [Suspect]
     Active Substance: TOPIRAMATE
     Indication: SEIZURE
     Dosage: UNK
     Route: 065
  4. LEVETIRACETAM. [Suspect]
     Active Substance: LEVETIRACETAM
     Indication: TONIC CONVULSION
     Dosage: 38 MG/KG, UNK
     Route: 065
  5. VALPROIC ACID. [Suspect]
     Active Substance: VALPROIC ACID
     Indication: SEIZURE
     Dosage: UNK
     Route: 065
  6. PHENYTOIN                          /00017402/ [Suspect]
     Active Substance: PHENYTOIN
     Indication: TONIC CONVULSION
     Dosage: 6 MG/KG, UNK
     Route: 065
  7. FOLINIC ACID                       /00566702/ [Concomitant]
     Active Substance: LEUCOVORIN CALCIUM
     Indication: TONIC CONVULSION
     Dosage: 25 MG, BID (0.7MG/KG)
     Route: 065
  8. LEVOCARNITINE. [Concomitant]
     Active Substance: LEVOCARNITINE
     Indication: CARNITINE DEFICIENCY
     Dosage: UNK
     Route: 065
  9. LACOSAMIDE. [Suspect]
     Active Substance: LACOSAMIDE
     Indication: SEIZURE
     Dosage: UNK
     Route: 065

REACTIONS (2)
  - Disease recurrence [Unknown]
  - Epilepsy [Unknown]
